FAERS Safety Report 20151831 (Version 1)
Quarter: 2021Q4

REPORT INFORMATION
  Report Type: Report from Study
  Country: US (occurrence: US)
  Receive Date: 20211206
  Receipt Date: 20211206
  Transmission Date: 20220303
  Serious: No
  Sender: FDA-Public Use
  Company Number: US-KYOWAKIRIN-2021BKK020166

PATIENT

DRUGS (1)
  1. CRYSVITA [Suspect]
     Active Substance: BUROSUMAB-TWZA
     Indication: Hereditary hypophosphataemic rickets
     Dosage: 10 MG, ONCE EVERY 2 WEEKS
     Route: 058
     Dates: start: 20210311

REACTIONS (1)
  - Aggression [Unknown]

NARRATIVE: CASE EVENT DATE: 20210101
